FAERS Safety Report 21865168 (Version 3)
Quarter: 2023Q1

REPORT INFORMATION
  Report Type: Spontaneous
  Country: US (occurrence: US)
  Receive Date: 20230116
  Receipt Date: 20230307
  Transmission Date: 20230417
  Serious: Yes (Hospitalization, Other)
  Sender: FDA-Public Use
  Company Number: US-SA-SAC20230113000274

PATIENT
  Age: 26 Year
  Sex: Male

DRUGS (1)
  1. CEREZYME [Suspect]
     Active Substance: IMIGLUCERASE
     Indication: Gaucher^s disease
     Dosage: 4800 U, QW
     Route: 042
     Dates: start: 20100413

REACTIONS (2)
  - Pneumothorax [Unknown]
  - Dehydration [Unknown]

NARRATIVE: CASE EVENT DATE: 20230109
